FAERS Safety Report 8202328-6 (Version None)
Quarter: 2012Q1

REPORT INFORMATION
  Report Type: 
  Country: None (occurrence: None)
  Receive Date: 20120312
  Receipt Date: 20120307
  Transmission Date: 20120608
  Serious: Yes (Death, Hospitalization, Other)
  Sender: FDA-Public Use
  Company Number: PHEH2012US003412

PATIENT
  Sex: Female

DRUGS (4)
  1. GILENYA [Suspect]
     Indication: RELAPSING-REMITTING MULTIPLE SCLEROSIS
     Dosage: 0.5 MG, QD
     Route: 048
     Dates: start: 20110929
  2. VICODIN [Suspect]
     Dosage: UNK UKN, UNK
  3. AMLODIPINE [Concomitant]
     Dosage: 5 MG, QD
  4. GABAPENTIN [Concomitant]
     Dosage: 600 MG, UNK

REACTIONS (51)
  - TOXIC ENCEPHALOPATHY [None]
  - CONFUSIONAL STATE [None]
  - RHABDOMYOLYSIS [None]
  - ALANINE AMINOTRANSFERASE INCREASED [None]
  - PROTHROMBIN TIME PROLONGED [None]
  - BLOOD GLUCOSE INCREASED [None]
  - LEUKOCYTOSIS [None]
  - VOMITING [None]
  - HAEMATOCRIT DECREASED [None]
  - NITRITE URINE PRESENT [None]
  - TOXICITY TO VARIOUS AGENTS [None]
  - BLOOD LACTIC ACID INCREASED [None]
  - BLOOD POTASSIUM DECREASED [None]
  - RENAL FAILURE [None]
  - INTERNATIONAL NORMALISED RATIO INCREASED [None]
  - INCONTINENCE [None]
  - HEPATIC FUNCTION ABNORMAL [None]
  - SINUS TACHYCARDIA [None]
  - BLOOD PHOSPHORUS DECREASED [None]
  - HEART RATE INCREASED [None]
  - LYMPHOCYTE PERCENTAGE DECREASED [None]
  - BLOOD PRESSURE INCREASED [None]
  - ESCHERICHIA INFECTION [None]
  - EPISTAXIS [None]
  - CARBON DIOXIDE DECREASED [None]
  - LOW DENSITY LIPOPROTEIN INCREASED [None]
  - MENTAL STATUS CHANGES [None]
  - OXYGEN SATURATION DECREASED [None]
  - UNRESPONSIVE TO STIMULI [None]
  - JOINT INJURY [None]
  - METABOLIC ACIDOSIS [None]
  - ASPARTATE AMINOTRANSFERASE INCREASED [None]
  - ACTIVATED PARTIAL THROMBOPLASTIN TIME PROLONGED [None]
  - BLOOD ALBUMIN INCREASED [None]
  - VITAMIN B12 INCREASED [None]
  - ANION GAP INCREASED [None]
  - NEUTROPHIL COUNT INCREASED [None]
  - BLOOD CREATINE PHOSPHOKINASE INCREASED [None]
  - BLOOD BILIRUBIN INCREASED [None]
  - NAUSEA [None]
  - BLOOD CALCIUM DECREASED [None]
  - C-REACTIVE PROTEIN INCREASED [None]
  - RED BLOOD CELL COUNT DECREASED [None]
  - TROPONIN INCREASED [None]
  - MUSCLE TWITCHING [None]
  - URINE KETONE BODY PRESENT [None]
  - BAND NEUTROPHIL COUNT DECREASED [None]
  - SOMNOLENCE [None]
  - FALL [None]
  - MONOCYTE COUNT INCREASED [None]
  - HEPATIC ENZYME INCREASED [None]
